FAERS Safety Report 6626850-9 (Version None)
Quarter: 2010Q1

REPORT INFORMATION
  Report Type: 
  Country: None (occurrence: None)
  Receive Date: 20100308
  Receipt Date: 20100224
  Transmission Date: 20100710
  Serious: Yes (Death)
  Sender: FDA-Public Use
  Company Number: 2009EN000193

PATIENT
  Sex: Female

DRUGS (7)
  1. ADAGEN [Suspect]
     Indication: COMBINED IMMUNODEFICIENCY
     Dosage: 20 IU/KG; BIW; IM
     Route: 030
     Dates: start: 20090419, end: 20090519
  2. GANCICLOVIR [Concomitant]
  3. AMIKACIN [Concomitant]
  4. CIPROFLOXACIN [Concomitant]
  5. OMEPRAZOLE [Concomitant]
  6. AMLODIPINE [Concomitant]
  7. CAPTOPRIL [Concomitant]

REACTIONS (4)
  - LYMPHOCYTE COUNT DECREASED [None]
  - PNEUMONIA VIRAL [None]
  - SEPSIS [None]
  - T-LYMPHOCYTE COUNT DECREASED [None]
